FAERS Safety Report 9782318 (Version 1)
Quarter: 2013Q4

REPORT INFORMATION
  Report Type: Spontaneous
  Country: DE (occurrence: DE)
  Receive Date: 20131226
  Receipt Date: 20131226
  Transmission Date: 20140711
  Serious: Yes (Hospitalization)
  Sender: FDA-Public Use
  Company Number: DE-ELI_LILLY_AND_COMPANY-DE201312006945

PATIENT
  Age: 24 Year
  Sex: Female

DRUGS (4)
  1. OLANZAPINE [Suspect]
     Indication: SCHIZOPHRENIA, PARANOID TYPE
     Dosage: 20 MG, QD
     Route: 048
  2. LORAZEPAM [Suspect]
     Indication: SCHIZOPHRENIA
     Dosage: 4 MG, QD
     Route: 048
  3. METHYLDOPA [Concomitant]
     Indication: HYPERTENSION
     Dosage: 1 DF, UNKNOWN
     Route: 048
  4. AMOXICILLIN [Concomitant]
     Indication: BACTERIAL INFECTION
     Dosage: 1 DF, UNKNOWN
     Route: 048

REACTIONS (2)
  - Psychotic disorder [Unknown]
  - Maternal exposure during pregnancy [Recovered/Resolved]
